FAERS Safety Report 9533561 (Version 2)
Quarter: 2013Q3

REPORT INFORMATION
  Report Type: Spontaneous
  Country: US (occurrence: US)
  Receive Date: 20130918
  Receipt Date: 20130918
  Transmission Date: 20140515
  Serious: No
  Sender: FDA-Public Use
  Company Number: US-PURDUE-USA-2011-0071864

PATIENT
  Age: 40 Year
  Sex: Female

DRUGS (1)
  1. BUTRANS [Suspect]
     Indication: PAIN
     Dosage: 10 MCG/HR, DAILY
     Route: 062
     Dates: start: 201106

REACTIONS (12)
  - Application site erythema [Not Recovered/Not Resolved]
  - Application site pruritus [Recovered/Resolved]
  - Application site warmth [Unknown]
  - Application site swelling [Unknown]
  - Application site irritation [Unknown]
  - Weight decreased [Unknown]
  - Pain [Unknown]
  - Rash [Unknown]
  - Product adhesion issue [Recovered/Resolved]
  - Device leakage [Unknown]
  - Application site hypersensitivity [Unknown]
  - Unevaluable event [Unknown]
